FAERS Safety Report 7433571-1 (Version None)
Quarter: 2011Q2

REPORT INFORMATION
  Report Type: 
  Country: None (occurrence: None)
  Receive Date: 20110422
  Receipt Date: 20110407
  Transmission Date: 20111010
  Serious: Yes (Other)
  Sender: FDA-Public Use
  Company Number: US-CELGENEUS-163-20785-11040949

PATIENT
  Sex: Female

DRUGS (1)
  1. THALOMID [Suspect]
     Dosage: 50 MILLIGRAM
     Route: 048
     Dates: start: 20110119

REACTIONS (5)
  - OCULAR HYPERAEMIA [None]
  - ALOPECIA [None]
  - DRY SKIN [None]
  - ONYCHOCLASIS [None]
  - GASTROOESOPHAGEAL REFLUX DISEASE [None]
